FAERS Safety Report 4981677-9 (Version None)
Quarter: 2006Q2

REPORT INFORMATION
  Report Type: 
  Country: None (occurrence: None)
  Receive Date: 20060425
  Receipt Date: 20060418
  Transmission Date: 20061013
  Serious: Yes (Hospitalization)
  Sender: FDA-Public Use
  Company Number: CH-JNJFOC-20060404202

PATIENT
  Age: 75 Year
  Sex: Male

DRUGS (1)
  1. HALDOL [Suspect]
     Route: 058

REACTIONS (3)
  - ABDOMINAL PAIN [None]
  - CONSTIPATION [None]
  - TREMOR [None]
